FAERS Safety Report 4478474-X (Version None)
Quarter: 2004Q4

REPORT INFORMATION
  Report Type: 
  Country: None (occurrence: None)
  Receive Date: 20041018
  Receipt Date: 20041018
  Transmission Date: 20050328
  Serious: Yes (Death)
  Sender: FDA-Public Use
  Company Number: None

PATIENT
  Age: 83 Year
  Sex: Female
  Weight: 69 kg

DRUGS (2)
  1. TRASYLOL [Suspect]
     Indication: CORONARY ARTERY DISEASE
     Dosage: 50 ML HR INTRAVENOUS
     Route: 042
     Dates: start: 20040121, end: 20040121
  2. HEPARIN - PORCINE 1000 UNITS/ML GENERIC [Suspect]
     Indication: AORTIC STENOSIS
     Dates: start: 20040121, end: 20040121

REACTIONS (5)
  - COAGULOPATHY [None]
  - HYPOTENSION [None]
  - INTRACARDIAC THROMBUS [None]
  - VENTRICULAR DYSFUNCTION [None]
  - WHITE CLOT SYNDROME [None]
